FAERS Safety Report 8550006-6 (Version None)
Quarter: 2012Q3

REPORT INFORMATION
  Report Type: 
  Country: None (occurrence: None)
  Receive Date: 20120730
  Receipt Date: 20120723
  Transmission Date: 20120928
  Serious: Yes (Hospitalization)
  Sender: FDA-Public Use
  Company Number: US-BAYER-2012-074325

PATIENT
  Age: 32 Year
  Sex: Male

DRUGS (7)
  1. DAPAGLIFLOZIN [Suspect]
     Indication: TYPE 1 DIABETES MELLITUS
     Dosage: UNK
     Route: 048
     Dates: start: 20120503, end: 20120516
  2. LANTUS [Suspect]
     Dosage: UNK
     Dates: start: 20100101
  3. IBUPROFEN [Concomitant]
     Dosage: UNK
     Dates: start: 20120410
  4. PLACEBO [Suspect]
     Indication: TYPE 1 DIABETES MELLITUS
     Dosage: UNK
     Dates: start: 20120503, end: 20120516
  5. NOVOLOG [Suspect]
     Dosage: UNK
     Dates: start: 20100101
  6. ACCUPRIL [Concomitant]
     Dosage: UNK
     Dates: start: 20110101
  7. ASPIRIN [Suspect]
     Dosage: UNK
     Dates: start: 19980101

REACTIONS (3)
  - GASTROINTESTINAL HAEMORRHAGE [None]
  - ASTHENIA [None]
  - TREMOR [None]
